FAERS Safety Report 15599284 (Version 6)
Quarter: 2019Q2

REPORT INFORMATION
  Report Type: Spontaneous
  Country: US (occurrence: US)
  Receive Date: 20181108
  Receipt Date: 20190619
  Transmission Date: 20190711
  Serious: Yes (Other)
  Sender: FDA-Public Use
  Company Number: US-TAKEDA-2018MPI015242

PATIENT
  Sex: Female
  Weight: 87.08 kg

DRUGS (2)
  1. NINLARO [Suspect]
     Active Substance: IXAZOMIB CITRATE
     Dosage: 3 MILLIGRAM
     Route: 048
  2. NINLARO [Suspect]
     Active Substance: IXAZOMIB CITRATE
     Indication: PLASMA CELL MYELOMA
     Dosage: 4 MG, 1/WEEK
     Route: 048
     Dates: start: 20181012

REACTIONS (13)
  - Fatigue [Unknown]
  - Urinary retention [Unknown]
  - Oral surgery [Unknown]
  - Pain in extremity [Unknown]
  - Oropharyngeal pain [Unknown]
  - Nasopharyngitis [Recovering/Resolving]
  - Nasal congestion [Unknown]
  - Cataract [Unknown]
  - Cardiomyopathy [Unknown]
  - Muscle spasms [Unknown]
  - Abdominal pain [Unknown]
  - Abdominal discomfort [Unknown]
  - Diarrhoea [Unknown]
